FAERS Safety Report 4953875-1 (Version None)
Quarter: 2006Q1

REPORT INFORMATION
  Report Type: 
  Country: None (occurrence: None)
  Receive Date: 20060321
  Receipt Date: 20060308
  Transmission Date: 20060701
  Serious: Yes (Hospitalization, Disabling)
  Sender: FDA-Public Use
  Company Number: 222542

PATIENT
  Age: 43 Year
  Sex: Male
  Weight: 76.2 kg

DRUGS (2)
  1. EFALIZUMAB (EFALIZUMAB)PWDR + SOLVENT, INJECTION SOLN, 125 MG [Suspect]
     Indication: PSORIASIS
     Dosage: 0.7 MG, 1/WEEK, SUBCUTANEOUS
     Route: 058
     Dates: start: 20050814, end: 20060122
  2. EFALIZUMAB (EFALIZUMAB)PWDR + SOLVENT, INJECTION SOLN, 125 MG [Suspect]
     Indication: PSORIASIS
     Dosage: 0.7 MG, 1/WEEK, SUBCUTANEOUS
     Route: 058
     Dates: start: 20060219

REACTIONS (12)
  - BLOOD BICARBONATE DECREASED [None]
  - CALCINOSIS [None]
  - CEREBELLAR ATAXIA [None]
  - CHEST X-RAY ABNORMAL [None]
  - CREATINE PHOSPHOKINASE DECREASED [None]
  - ELECTROCARDIOGRAM T WAVE ABNORMAL [None]
  - FALL [None]
  - GAIT DISTURBANCE [None]
  - GRAND MAL CONVULSION [None]
  - GRANULOMA [None]
  - LEUKOCYTOSIS [None]
  - PHYSICAL EXAMINATION ABNORMAL [None]
